FAERS Safety Report 4499171-0 (Version None)
Quarter: 2004Q4

REPORT INFORMATION
  Report Type: 
  Country: None (occurrence: None)
  Receive Date: 20041111
  Receipt Date: 20040622
  Transmission Date: 20050328
  Serious: No
  Sender: FDA-Public Use
  Company Number: US-GLAXOSMITHKLINE-A0515711A

PATIENT
  Sex: Female

DRUGS (1)
  1. RELAFEN [Suspect]
     Indication: ILL-DEFINED DISORDER

REACTIONS (1)
  - ONYCHORRHEXIS [None]
